FAERS Safety Report 22127637 (Version 1)
Quarter: 2023Q1

REPORT INFORMATION
  Report Type: Spontaneous
  Country: US (occurrence: US)
  Receive Date: 20230323
  Receipt Date: 20230323
  Transmission Date: 20230417
  Serious: Yes (Hospitalization, Other)
  Sender: FDA-Public Use
  Company Number: US-GLENMARK PHARMACEUTICALS-2023GMK080280

PATIENT
  Age: 87 Year
  Sex: Female

DRUGS (1)
  1. PROPAFENONE HYDROCHLORIDE [Suspect]
     Active Substance: PROPAFENONE HYDROCHLORIDE
     Indication: Atrial fibrillation
     Dosage: 150 MILLIGRAM, TID
     Route: 065

REACTIONS (8)
  - Toxicity to various agents [Unknown]
  - Mental status changes [Recovered/Resolved]
  - Unresponsive to stimuli [Unknown]
  - Bradypnoea [Unknown]
  - Hypoxia [Unknown]
  - Heart rate irregular [Unknown]
  - Hyperhidrosis [Unknown]
  - Electrocardiogram QRS complex prolonged [Recovered/Resolved]
